FAERS Safety Report 7128246-2 (Version None)
Quarter: 2010Q4

REPORT INFORMATION
  Report Type: 
  Country: None (occurrence: None)
  Receive Date: 20101130
  Receipt Date: 20101122
  Transmission Date: 20110411
  Serious: Yes (Other)
  Sender: FDA-Public Use
  Company Number: US-SANOFI-AVENTIS-2010SA061728

PATIENT
  Age: 65 Year
  Sex: Male
  Weight: 81.65 kg

DRUGS (9)
  1. PLAVIX [Suspect]
     Indication: ANTIPLATELET THERAPY
     Dosage: 12 MONTH THERAPY
     Route: 048
     Dates: start: 20060401, end: 20070101
  2. PLAVIX [Suspect]
     Indication: STENT PLACEMENT
     Dosage: 12 MONTH THERAPY
     Route: 048
     Dates: start: 20060401, end: 20070101
  3. PLAVIX [Suspect]
     Route: 048
     Dates: start: 20100921
  4. PLAVIX [Suspect]
     Route: 048
     Dates: start: 20100921
  5. ATENOLOL [Concomitant]
     Indication: STENT PLACEMENT
     Dates: start: 20050401
  6. ATACAND [Concomitant]
     Indication: STENT PLACEMENT
     Dates: start: 20100921
  7. ASPIRIN [Concomitant]
  8. ATORVASTATIN [Concomitant]
     Indication: STENT PLACEMENT
     Dates: start: 20050401
  9. TAMSULOSIN [Concomitant]
     Indication: BENIGN PROSTATIC HYPERPLASIA
     Dates: start: 20080401

REACTIONS (4)
  - CONDITION AGGRAVATED [None]
  - MACULAR DEGENERATION [None]
  - POST PROCEDURAL HAEMORRHAGE [None]
  - RETINAL HAEMORRHAGE [None]
